FAERS Safety Report 8093947-9 (Version None)
Quarter: 2012Q1

REPORT INFORMATION
  Report Type: 
  Country: None (occurrence: None)
  Receive Date: 20120126
  Receipt Date: 20120120
  Transmission Date: 20120608
  Serious: Yes (Other)
  Sender: FDA-Public Use
  Company Number: AUR-APL-2011-05135

PATIENT
  Age: 21 Year
  Sex: Female

DRUGS (5)
  1. CETIRIZINE [Suspect]
     Indication: SWELLING FACE
     Dosage: 10 MG (10 MG,1 IN 1 D),ORAL
     Route: 048
     Dates: start: 20061116, end: 20110620
  2. CETIRIZINE [Suspect]
     Indication: OEDEMA PERIPHERAL
     Dosage: 10 MG (10 MG,1 IN 1 D),ORAL
     Route: 048
     Dates: start: 20061116, end: 20110620
  3. CETIRIZINE [Suspect]
     Indication: HYPERSENSITIVITY
     Dosage: 10 MG (10 MG,1 IN 1 D),ORAL
     Route: 048
     Dates: start: 20061116, end: 20110620
  4. LAMICTAL (LAMOTIRGINE) [Concomitant]
  5. TERBUTALINE SULFATE [Concomitant]

REACTIONS (3)
  - EPILEPSY [None]
  - COMPLEX PARTIAL SEIZURES [None]
  - OFF LABEL USE [None]
